FAERS Safety Report 9310449 (Version 4)
Quarter: 2013Q3

REPORT INFORMATION
  Report Type: Spontaneous
  Country: US (occurrence: US)
  Receive Date: 20130527
  Receipt Date: 20130710
  Transmission Date: 20140515
  Serious: No
  Sender: FDA-Public Use
  Company Number: US-PFIZER INC-2013156926

PATIENT
  Age: 27 Year
  Sex: Female
  Weight: 83.45 kg

DRUGS (3)
  1. IBUPROFEN [Suspect]
     Indication: MUSCLE SPASMS
     Dosage: UNK
     Dates: start: 20130327
  2. PARAGARD [Suspect]
     Indication: CONTRACEPTION
     Dosage: UNK
  3. LEVOTHYROXINE [Concomitant]
     Indication: HYPOTHYROIDISM
     Dosage: UNK, ^1^ ONCE A DAY
     Dates: start: 20121022

REACTIONS (3)
  - Uterine spasm [Recovered/Resolved]
  - Vomiting [Unknown]
  - Device expulsion [Recovered/Resolved]
